FAERS Safety Report 4372945-2 (Version None)
Quarter: 2004Q2

REPORT INFORMATION
  Report Type: 
  Country: None (occurrence: None)
  Receive Date: 20040603
  Receipt Date: 20040521
  Transmission Date: 20050107
  Serious: Yes (Hospitalization)
  Sender: FDA-Public Use
  Company Number: HQWYE065921MAY04

PATIENT
  Age: 79 Year
  Sex: Female

DRUGS (6)
  1. CORDARONE [Suspect]
     Dosage: 2 G 1X PER 1 WK; ORAL
     Route: 048
  2. ATACAND [Suspect]
     Dosage: 1 UNIT 1X PER 1 DAY; ORAL
     Route: 048
     Dates: start: 19981118, end: 19990317
  3. CORVASAL (MOSLSIDOMINE, ) [Suspect]
     Dosage: 2 UNIT 1X PER 1 DAY; ORAL
     Route: 048
  4. DOVENOR (DIOSMIN, ) [Suspect]
     Dosage: ORAL
     Route: 048
  5. LYSANXIA (PRAZEPAM, ) [Suspect]
     Dosage: TABLET 10 MG, ORAL
     Route: 048
  6. TOCOPHEROX [Suspect]
     Dosage: 500 MG 1X PER 1 DAY; ORAL
     Route: 048

REACTIONS (4)
  - ASTHMA [None]
  - BRONCHITIS [None]
  - DYSPNOEA [None]
  - SINUSITIS [None]
